FAERS Safety Report 14750615 (Version 2)
Quarter: 2018Q4

REPORT INFORMATION
  Report Type: Spontaneous
  Country: US (occurrence: US)
  Receive Date: 20180412
  Receipt Date: 20181212
  Transmission Date: 20190204
  Serious: No
  Sender: FDA-Public Use
  Company Number: US-PFIZER INC-2018146717

PATIENT
  Age: 61 Year
  Sex: Male

DRUGS (5)
  1. SOMAVERT [Suspect]
     Active Substance: PEGVISOMANT
     Dosage: 10 MG, DAILY
     Dates: start: 201804
  2. SOMAVERT [Suspect]
     Active Substance: PEGVISOMANT
     Indication: ACROMEGALY
     Dosage: 10 MG, DAILY
     Dates: start: 2008, end: 2015
  3. SOMAVERT [Suspect]
     Active Substance: PEGVISOMANT
     Dosage: 40 MG, DAILY (40 MG X1)
     Dates: end: 2015
  4. SOMAVERT [Suspect]
     Active Substance: PEGVISOMANT
     Dosage: 15 MG, DAILY
     Route: 058
     Dates: start: 20181025
  5. SOMAVERT [Suspect]
     Active Substance: PEGVISOMANT
     Dosage: UNK
     Dates: end: 2015

REACTIONS (1)
  - Insulin-like growth factor decreased [Unknown]
